FAERS Safety Report 19535593 (Version 1)
Quarter: 2021Q3

REPORT INFORMATION
  Report Type: Spontaneous
  Country: US (occurrence: US)
  Receive Date: 20210714
  Receipt Date: 20210714
  Transmission Date: 20211014
  Serious: No
  Sender: FDA-Public Use
  Company Number: US-ASTRAZENECA-2021A558753

PATIENT
  Sex: Female
  Weight: 58.1 kg

DRUGS (2)
  1. CALQUENCE [Suspect]
     Active Substance: ACALABRUTINIB
     Indication: CHRONIC LYMPHOCYTIC LEUKAEMIA
     Route: 048
     Dates: start: 20210601
  2. RITUXIMAB. [Concomitant]
     Active Substance: RITUXIMAB

REACTIONS (14)
  - Heart rate irregular [Unknown]
  - Periorbital swelling [Unknown]
  - Balance disorder [Unknown]
  - Diarrhoea [Unknown]
  - Dizziness [Unknown]
  - Fatigue [Unknown]
  - Pruritus [Unknown]
  - Lip swelling [Unknown]
  - Platelet count decreased [Unknown]
  - Fear [Unknown]
  - Rash [Unknown]
  - Haemoglobin decreased [Unknown]
  - Heart rate increased [Unknown]
  - Feeling abnormal [Unknown]
